FAERS Safety Report 19305375 (Version 1)
Quarter: 2021Q2

REPORT INFORMATION
  Report Type: Spontaneous
  Country: JP (occurrence: JP)
  Receive Date: 20210526
  Receipt Date: 20210526
  Transmission Date: 20210717
  Serious: Yes (Hospitalization)
  Sender: FDA-Public Use
  Company Number: JP-TEVA-2021-JP-1914801

PATIENT
  Age: 79 Year
  Sex: Female

DRUGS (6)
  1. ATORVASTATIN [Concomitant]
     Active Substance: ATORVASTATIN
     Route: 065
  2. ICODEXTRIN [Suspect]
     Active Substance: ICODEXTRIN
     Indication: PERITONEAL DIALYSIS
     Route: 065
  3. OLMESARTAN [Concomitant]
     Active Substance: OLMESARTAN
     Route: 065
  4. GLUCOSE [Concomitant]
     Active Substance: DEXTROSE
     Indication: PERITONEAL DIALYSIS
     Route: 065
  5. NIFEDIPINE. [Suspect]
     Active Substance: NIFEDIPINE
     Route: 065
  6. CALCIUM CARBONATE. [Concomitant]
     Active Substance: CALCIUM CARBONATE
     Route: 065

REACTIONS (1)
  - Pemphigoid [Recovered/Resolved]
